FAERS Safety Report 5055852-1 (Version None)
Quarter: 2006Q3

REPORT INFORMATION
  Report Type: 
  Country: None (occurrence: None)
  Receive Date: 20060720
  Receipt Date: 20060710
  Transmission Date: 20061208
  Serious: Yes (Hospitalization)
  Sender: FDA-Public Use
  Company Number: JP-NOVOPROD-255026

PATIENT
  Age: 3 Year
  Sex: Female

DRUGS (1)
  1. NORDITROPIN SIMPLEXX [Suspect]
     Indication: BODY HEIGHT BELOW NORMAL
     Dosage: .5 IU/KG, UNK

REACTIONS (17)
  - ANAEMIA MACROCYTIC [None]
  - BLOOD ALDOSTERONE INCREASED [None]
  - BLOOD CHOLESTEROL INCREASED [None]
  - BLOOD ERYTHROPOIETIN INCREASED [None]
  - BLOOD THYROID STIMULATING HORMONE DECREASED [None]
  - BLOOD TRIGLYCERIDES INCREASED [None]
  - BONE MARROW FAILURE [None]
  - DEHYDRATION [None]
  - HAEMORRHAGIC CEREBRAL INFARCTION [None]
  - HYPERCHLORAEMIA [None]
  - HYPERLACTACIDAEMIA [None]
  - HYPERNATRAEMIA [None]
  - METABOLIC ACIDOSIS [None]
  - NEPHROGENIC DIABETES INSIPIDUS [None]
  - RENIN INCREASED [None]
  - URINE OUTPUT DECREASED [None]
  - WHITE BLOOD CELL COUNT INCREASED [None]
